FAERS Safety Report 5146838-7 (Version None)
Quarter: 2006Q4

REPORT INFORMATION
  Report Type: 
  Country: None (occurrence: None)
  Receive Date: 20061109
  Receipt Date: 20061027
  Transmission Date: 20070319
  Serious: Yes (Hospitalization, Other)
  Sender: FDA-Public Use
  Company Number: PHBS2006IT16828

PATIENT
  Age: 56 Year
  Sex: Male

DRUGS (12)
  1. AZATHIOPRINE [Concomitant]
  2. STEROIDS NOS [Concomitant]
  3. ANTITHYMOCYTE IMMUNOGLOBULIN (RABBIT) [Concomitant]
  4. CAPTOPRIL [Concomitant]
     Indication: HYPERTENSION
     Dosage: 150 MG/D
  5. FUROSEMIDE [Concomitant]
     Indication: HYPERTENSION
  6. PRAVASTATIN [Concomitant]
     Indication: HYPERCHOLESTEROLAEMIA
     Dosage: 20 MG/DAY
  7. ASPIRIN [Concomitant]
     Dosage: 100 MG/D
  8. RAMIPRIL [Concomitant]
  9. ATENOLOL [Concomitant]
  10. TICLOPIDINE [Concomitant]
  11. ATORVASTATIN CALCIUM [Concomitant]
  12. CYCLOSPORINE [Suspect]
     Indication: HEART TRANSPLANT
     Route: 048
     Dates: start: 19950101

REACTIONS (11)
  - ACUTE MYOCARDIAL INFARCTION [None]
  - ANGINA PECTORIS [None]
  - CARDIOVASCULAR DISORDER [None]
  - CORONARY ANGIOPLASTY [None]
  - CORONARY ARTERIAL STENT INSERTION [None]
  - DYSPNOEA EXERTIONAL [None]
  - EJECTION FRACTION DECREASED [None]
  - HEART TRANSPLANT REJECTION [None]
  - PERICARDIAL EFFUSION [None]
  - VASCULAR GRAFT COMPLICATION [None]
  - VENTRICULAR DYSKINESIA [None]
